FAERS Safety Report 26154846 (Version 1)
Quarter: 2025Q4

REPORT INFORMATION
  Report Type: Spontaneous
  Country: CN (occurrence: CN)
  Receive Date: 20251215
  Receipt Date: 20251215
  Transmission Date: 20260117
  Serious: Yes (Life-Threatening, Hospitalization, Other)
  Sender: STRIDES
  Company Number: CN-STRIDES ARCOLAB LIMITED-2025SP015448

PATIENT
  Age: 57 Year
  Sex: Male
  Weight: 60 kg

DRUGS (13)
  1. ATORVASTATIN [Interacting]
     Active Substance: ATORVASTATIN
     Indication: Acute coronary syndrome
     Dosage: 40 MILLIGRAM DAILY
     Route: 048
     Dates: start: 202503, end: 2025
  2. TICAGRELOR [Interacting]
     Active Substance: TICAGRELOR
     Indication: Acute coronary syndrome
     Dosage: 90 MILLIGRAM, BID
     Route: 065
     Dates: start: 202503
  3. CLOPIDOGREL [Concomitant]
     Active Substance: CLOPIDOGREL BISULFATE
     Indication: Acute coronary syndrome
     Dosage: 600 MILLIGRAM
     Route: 048
     Dates: start: 202503
  4. ASPIRIN [Concomitant]
     Active Substance: ASPIRIN
     Indication: Acute coronary syndrome
     Dosage: 300 MILLIGRAM
     Route: 048
     Dates: start: 202503
  5. ASPIRIN [Concomitant]
     Active Substance: ASPIRIN
     Dosage: 100 MILLIGRAM
     Route: 048
     Dates: start: 202503
  6. EZETIMIBE [Concomitant]
     Active Substance: EZETIMIBE
     Indication: Acute coronary syndrome
     Dosage: 10 MILLIGRAM, QD
     Route: 065
     Dates: start: 202503
  7. PANTOPRAZOLE SODIUM [Concomitant]
     Active Substance: PANTOPRAZOLE SODIUM
     Indication: Product used for unknown indication
     Dosage: UNK
     Route: 065
     Dates: start: 202503
  8. REMIFENTANIL [Concomitant]
     Active Substance: REMIFENTANIL
     Indication: Analgesic therapy
     Dosage: UNK
     Route: 065
     Dates: start: 202503
  9. MIDAZOLAM [Concomitant]
     Active Substance: MIDAZOLAM
     Indication: Sedation
     Dosage: UNK
     Route: 065
     Dates: start: 202503
  10. NOREPINEPHRINE [Concomitant]
     Active Substance: NOREPINEPHRINE
     Indication: Blood pressure management
     Dosage: UNK
     Route: 065
     Dates: start: 202503
  11. DOPAMINE [Concomitant]
     Active Substance: DOPAMINE HYDROCHLORIDE
     Indication: Product used for unknown indication
     Dosage: UNK
     Route: 065
     Dates: start: 202503
  12. FUROSEMIDE [Concomitant]
     Active Substance: FUROSEMIDE
     Indication: Polyuria
     Dosage: UNK
     Route: 065
     Dates: start: 202503
  13. PIPERACILLIN SODIUM\TAZOBACTAM SODIUM [Concomitant]
     Active Substance: PIPERACILLIN SODIUM\TAZOBACTAM SODIUM
     Indication: Pneumonia aspiration
     Dosage: UNK
     Route: 065
     Dates: start: 20250306

REACTIONS (4)
  - Cardiac failure [Unknown]
  - Rhabdomyolysis [Unknown]
  - Acute kidney injury [Unknown]
  - Drug interaction [Unknown]

NARRATIVE: CASE EVENT DATE: 20250301
